FAERS Safety Report 10306205 (Version 4)
Quarter: 2014Q3

REPORT INFORMATION
  Report Type: Spontaneous
  Country: GB (occurrence: GB)
  Receive Date: 20140715
  Receipt Date: 20140912
  Transmission Date: 20150326
  Serious: Yes (Other)
  Sender: FDA-Public Use
  Company Number: GB-JNJFOC-20140104238

PATIENT
  Age: 78 Year
  Sex: Female

DRUGS (2)
  1. XARELTO [Suspect]
     Active Substance: RIVAROXABAN
     Indication: PRODUCT USED FOR UNKNOWN INDICATION
     Route: 048
  2. PRADAXA [Concomitant]
     Active Substance: DABIGATRAN ETEXILATE MESYLATE
     Route: 065

REACTIONS (19)
  - Upper extremity mass [Unknown]
  - Grip strength decreased [Unknown]
  - Transient ischaemic attack [Unknown]
  - Arterial disorder [Recovered/Resolved]
  - Hypertension [Not Recovered/Not Resolved]
  - Thrombosis [Unknown]
  - Activities of daily living impaired [Unknown]
  - Dizziness [Unknown]
  - Arterial disorder [Unknown]
  - Neck pain [Unknown]
  - Contusion [Unknown]
  - Vasodilatation [Unknown]
  - Cardiac disorder [Unknown]
  - Pyrexia [Unknown]
  - Fatigue [Unknown]
  - Pain in extremity [Unknown]
  - Malaise [Unknown]
  - Arthralgia [Unknown]
  - Muscular weakness [Recovered/Resolved]

NARRATIVE: CASE EVENT DATE: 201406
